FAERS Safety Report 23381616 (Version 2)
Quarter: 2024Q1

REPORT INFORMATION
  Report Type: Spontaneous
  Country: BR (occurrence: BR)
  Receive Date: 20240109
  Receipt Date: 20240219
  Transmission Date: 20240409
  Serious: Yes (Other)
  Sender: FDA-Public Use
  Company Number: BR-002147023-NVSC2023BR243592

PATIENT
  Age: 59 Year
  Sex: Male
  Weight: 66 kg

DRUGS (3)
  1. ERENUMAB [Suspect]
     Active Substance: ERENUMAB
     Indication: Migraine
     Dosage: 70 MG (ONLY DOSE)
     Route: 065
     Dates: start: 20211207
  2. ERENUMAB [Suspect]
     Active Substance: ERENUMAB
     Dosage: 70 MG (ONLY DOSE)
     Route: 065
     Dates: start: 20231219
  3. SUMAXPRO [Concomitant]
     Indication: Migraine
     Dosage: 2 DOSAGE FORM, QD (2 TABLETS, QD)
     Route: 048

REACTIONS (2)
  - Migraine [Recovering/Resolving]
  - Blood cholesterol increased [Recovered/Resolved]

NARRATIVE: CASE EVENT DATE: 20230201
